FAERS Safety Report 9661218 (Version 1)
Quarter: 2013Q4

REPORT INFORMATION
  Report Type: Spontaneous
  Country: US (occurrence: None)
  Receive Date: 20131030
  Receipt Date: 20131030
  Transmission Date: 20140711
  Serious: No
  Sender: FDA-Public Use
  Company Number: 2013087332

PATIENT
  Age: 64 Year
  Sex: Male

DRUGS (2)
  1. FRAGMIN (DALTEPARIN SODIUM) SOLUTION FOR INJECTION [Suspect]
     Indication: THROMBOSIS
     Dates: start: 2011
  2. PREDNISONE (PREDNISONE) [Suspect]

REACTIONS (1)
  - Weight decreased [None]
